FAERS Safety Report 6401268-2 (Version None)
Quarter: 2009Q4

REPORT INFORMATION
  Report Type: 
  Country: None (occurrence: None)
  Receive Date: 20091009
  Receipt Date: 20091009
  Transmission Date: 20100525
  Serious: Yes (Life-Threatening, Hospitalization)
  Sender: FDA-Public Use
  Company Number: None

PATIENT
  Age: 25 Day
  Sex: Female
  Weight: 2 kg

DRUGS (5)
  1. TAMIFLU [Suspect]
     Indication: INFLUENZA
     Dosage: 12 MG ONE TIME PO
     Route: 048
     Dates: start: 20090924, end: 20090924
  2. AMPICILLIN [Concomitant]
  3. GENTAMICIN [Concomitant]
  4. VANCOMYCIN [Concomitant]
  5. MULTI-VITAMINS [Concomitant]

REACTIONS (2)
  - APNOEA [None]
  - GRAND MAL CONVULSION [None]
